FAERS Safety Report 5256765-2 (Version None)
Quarter: 2007Q1

REPORT INFORMATION
  Report Type: 
  Country: None (occurrence: None)
  Receive Date: 20070306
  Receipt Date: 20070224
  Transmission Date: 20070707
  Serious: Yes (Other)
  Sender: FDA-Public Use
  Company Number: US-PFIZER INC-2007015404

PATIENT
  Sex: Female
  Weight: 81.6 kg

DRUGS (18)
  1. CORTEF [Suspect]
     Indication: ADRENAL INSUFFICIENCY
     Dates: start: 20070102, end: 20070102
  2. PREDNISONE [Suspect]
  3. PROZAC [Concomitant]
  4. HYDROCODONE [Concomitant]
  5. VALIUM [Concomitant]
     Dosage: FREQ:IN THE MORNING
  6. ZYRTEC [Concomitant]
     Dosage: FREQ:IN THE MORNING
  7. SYNTHROID [Concomitant]
     Dosage: FREQ:IN THE MORNING
  8. EDECRIN [Concomitant]
     Dosage: FREQ:IN THE MORNING
  9. PRILOSEC [Concomitant]
     Dosage: FREQ:IN THE MORNING
  10. GUAIFENESIN [Concomitant]
  11. ALL OTHER THERAPEUTIC PRODUCTS [Concomitant]
     Dosage: FREQ:IN THE MORNING
  12. CALCIUM [Concomitant]
     Dosage: FREQ:IN THE MORNING
  13. ADVAIR DISKUS 100/50 [Concomitant]
     Dosage: FREQ:IN THE MORNING
  14. QVAR 40 [Concomitant]
     Dosage: FREQ:IN THE MORNING
  15. ATROVENT [Concomitant]
     Dosage: FREQ:IN THE MORNING
  16. NASACORT AQ [Concomitant]
     Dosage: FREQ:IN THE MORNING
  17. ASTELIN [Concomitant]
     Dosage: FREQ:IN THE MORNING
  18. KLONOPIN [Concomitant]
     Indication: RESTLESS LEGS SYNDROME
     Dosage: FREQ:IN THE EVENING

REACTIONS (13)
  - ASTHENIA [None]
  - DIARRHOEA [None]
  - EROSIVE OESOPHAGITIS [None]
  - GASTROOESOPHAGEAL REFLUX DISEASE [None]
  - LOSS OF CONSCIOUSNESS [None]
  - MALAISE [None]
  - PARATHYROID DISORDER [None]
  - RESPIRATORY TRACT INFECTION [None]
  - SINUSITIS [None]
  - SPINAL FRACTURE [None]
  - SUICIDAL BEHAVIOUR [None]
  - VOMITING [None]
  - WEIGHT DECREASED [None]
